FAERS Safety Report 7605827-0 (Version None)
Quarter: 2011Q3

REPORT INFORMATION
  Report Type: 
  Country: None (occurrence: None)
  Receive Date: 20110713
  Receipt Date: 20110628
  Transmission Date: 20111222
  Serious: Yes (Hospitalization)
  Sender: FDA-Public Use
  Company Number: FI-ENDO PHARMACEUTICALS INC.-FRVA20110015

PATIENT
  Age: 45 Year
  Sex: Female

DRUGS (4)
  1. ATACAND HCT [Suspect]
     Indication: HYPERTENSION
     Dosage: UNK
     Route: 065
     Dates: start: 20090101, end: 20110329
  2. MIRENA [Suspect]
     Indication: CONTRACEPTION
     Dosage: UNK
     Dates: start: 20070101, end: 20110404
  3. ATACAND [Concomitant]
     Indication: HYPERTENSION
     Dosage: UNK
     Route: 065
  4. FROVA [Suspect]
     Indication: MIGRAINE
     Dosage: 2.5 MG
     Route: 048
     Dates: start: 20080101, end: 20110404

REACTIONS (3)
  - HYPERALDOSTERONISM [None]
  - HYPERTENSION [None]
  - MIGRAINE [None]
